FAERS Safety Report 17903247 (Version 3)
Quarter: 2021Q3

REPORT INFORMATION
  Report Type: Other
  Country: US (occurrence: US)
  Receive Date: 20200617
  Receipt Date: 20210901
  Transmission Date: 20211014
  Serious: Yes (Other)
  Sender: FDA-Public Use
  Company Number: US-ROCHE-2619496

PATIENT
  Age: 53 Year
  Sex: Female

DRUGS (2)
  1. OCREVUS [Suspect]
     Active Substance: OCRELIZUMAB
     Dosage: ON AN UNSPEFIED DATE IN /JAN/2020, SHE HAD MOST RECENT OCREVUS INFUSION PRIOR TO COMPROMISED IMMUNIT
     Route: 042
     Dates: start: 20191219, end: 202001
  2. OCREVUS [Suspect]
     Active Substance: OCRELIZUMAB
     Indication: RELAPSING MULTIPLE SCLEROSIS
     Dosage: INFUSE 600MG INTRAVENOUSLY EVERY 6 MONTH(S)?SUBSEQUENT DOSE: 17/DEC/2018, 17/JUN/2019 (600 MG), 19/D
     Route: 042
     Dates: start: 20181203

REACTIONS (3)
  - Clostridium difficile infection [Recovered/Resolved]
  - Immunodeficiency [Not Recovered/Not Resolved]
  - Gastrointestinal disorder [Not Recovered/Not Resolved]

NARRATIVE: CASE EVENT DATE: 202002
